FAERS Safety Report 14011383 (Version 1)
Quarter: 2017Q3

REPORT INFORMATION
  Report Type: Spontaneous
  Country: US (occurrence: None)
  Receive Date: 20170926
  Receipt Date: 20170926
  Transmission Date: 20171128
  Serious: Yes (Hospitalization)
  Sender: FDA-Public Use
  Company Number: None

PATIENT
  Age: 73 Year
  Sex: Female

DRUGS (21)
  1. ADCIRCA [Suspect]
     Active Substance: TADALAFIL
     Indication: PULMONARY ARTERIAL HYPERTENSION
     Route: 048
     Dates: start: 20110121
  2. FERROUS SULF [Concomitant]
     Active Substance: FERROUS SULFATE
  3. UPTRAVI [Concomitant]
     Active Substance: SELEXIPAG
  4. HYDROXYUREA. [Concomitant]
     Active Substance: HYDROXYUREA
  5. METOPROL TAR [Concomitant]
  6. HYDROCO/APAP [Concomitant]
     Active Substance: ACETAMINOPHEN\HYDROCODONE
  7. MULTIVITAMINS [Concomitant]
     Active Substance: VITAMINS
  8. TRACLEER [Concomitant]
     Active Substance: BOSENTAN
  9. VITAMIN D3 [Concomitant]
     Active Substance: CHOLECALCIFEROL
  10. ASPIRIN. [Concomitant]
     Active Substance: ASPIRIN
  11. IRON [Concomitant]
     Active Substance: IRON
  12. SPIRONOLACT [Concomitant]
     Active Substance: SPIRONOLACTONE
  13. VALSART/HCTZ TAB [Concomitant]
     Active Substance: HYDROCHLOROTHIAZIDE\VALSARTAN
  14. ANAGRELIDE. [Concomitant]
     Active Substance: ANAGRELIDE HYDROCHLORIDE
  15. DIOVAN [Concomitant]
     Active Substance: VALSARTAN
  16. PREDNISONE. [Concomitant]
     Active Substance: PREDNISONE
  17. AMOXICILLIN. [Concomitant]
     Active Substance: AMOXICILLIN
  18. FUROSEMIDE. [Concomitant]
     Active Substance: FUROSEMIDE
  19. MICARDIS [Concomitant]
     Active Substance: TELMISARTAN
  20. POT CL MICRO [Concomitant]
  21. THERAPEUTIC [Concomitant]
     Active Substance: COAL TAR

REACTIONS (2)
  - Blood pressure increased [None]
  - Hypertension [None]
